FAERS Safety Report 6091528-X (Version None)
Quarter: 2009Q1

REPORT INFORMATION
  Report Type: 
  Country: None (occurrence: None)
  Receive Date: 20090225
  Receipt Date: 20090218
  Transmission Date: 20090719
  Serious: Yes (Hospitalization)
  Sender: FDA-Public Use
  Company Number: PHHO2006DE21497

PATIENT
  Sex: Male
  Weight: 85 kg

DRUGS (4)
  1. MYFORTIC [Suspect]
     Indication: RENAL TRANSPLANT
     Dosage: 360 MG DAILY
     Route: 048
     Dates: end: 20061208
  2. MYFORTIC [Suspect]
     Dosage: 360 MG / DAY
     Route: 048
     Dates: start: 20061216
  3. RAD 666 RAD+TAB [Suspect]
     Indication: RENAL TRANSPLANT
     Dosage: 2 MG DAILY
     Route: 048
     Dates: start: 20060720
  4. URBASON [Concomitant]
     Indication: RENAL TRANSPLANT

REACTIONS (4)
  - GASTROENTERITIS NOROVIRUS [None]
  - GASTROENTERITIS VIRAL [None]
  - HAEMATOMA [None]
  - HAEMATOMA EVACUATION [None]
